FAERS Safety Report 9517301 (Version 1)
Quarter: 2013Q3

REPORT INFORMATION
  Report Type: Spontaneous
  Country: US (occurrence: US)
  Receive Date: 20130911
  Receipt Date: 20130911
  Transmission Date: 20140515
  Serious: No
  Sender: FDA-Public Use
  Company Number: US-ASTRAZENECA-2013SE60036

PATIENT
  Age: 75 Year
  Sex: Male
  Weight: 74.4 kg

DRUGS (2)
  1. SYMBICORT [Suspect]
     Indication: CHRONIC OBSTRUCTIVE PULMONARY DISEASE
     Dosage: 160/4.5 TWO INHALATIONS, BID
     Route: 055
     Dates: start: 20130720
  2. COMBIVENT RESPIMAT [Concomitant]

REACTIONS (4)
  - Epistaxis [Recovering/Resolving]
  - Sneezing [Unknown]
  - Rhinorrhoea [Unknown]
  - Dysphonia [Unknown]
